FAERS Safety Report 19086777 (Version 2)
Quarter: 2021Q2

REPORT INFORMATION
  Report Type: Spontaneous
  Country: GR (occurrence: GR)
  Receive Date: 20210402
  Receipt Date: 20210413
  Transmission Date: 20210717
  Serious: Yes (Other)
  Sender: FDA-Public Use
  Company Number: GR-PFIZER INC-2021317124

PATIENT
  Age: 33 Year
  Sex: Female
  Weight: 70 kg

DRUGS (3)
  1. PREGABALIN. [Suspect]
     Active Substance: PREGABALIN
     Indication: PAIN
     Dosage: 25 MG, DAILY
  2. PREGABALIN. [Suspect]
     Active Substance: PREGABALIN
     Dosage: 75 MG, DAILY
  3. PREGABALIN. [Suspect]
     Active Substance: PREGABALIN
     Dosage: 225 MG, DAILY

REACTIONS (5)
  - Pain [Recovered/Resolved]
  - Maternal exposure during pregnancy [Unknown]
  - Dizziness [Unknown]
  - Suicide attempt [Unknown]
  - Somnolence [Unknown]
